FAERS Safety Report 8240655-7 (Version None)
Quarter: 2012Q1

REPORT INFORMATION
  Report Type: 
  Country: None (occurrence: None)
  Receive Date: 20120328
  Receipt Date: 20120320
  Transmission Date: 20120608
  Serious: Yes (Other)
  Sender: FDA-Public Use
  Company Number: US-PFIZER INC-2012072997

PATIENT
  Sex: Female
  Weight: 64.399 kg

DRUGS (3)
  1. XALATAN [Concomitant]
     Indication: GLAUCOMA
     Dosage: UNK
  2. LATANOPROST [Suspect]
     Indication: GLAUCOMA
     Dosage: UNK
  3. CENTRUM [Suspect]
     Indication: FATIGUE
     Dosage: 1X/DAY
     Route: 048

REACTIONS (6)
  - DRUG INEFFECTIVE [None]
  - WEIGHT INCREASED [None]
  - ARTHRITIS [None]
  - ARTHROPATHY [None]
  - HYPERSENSITIVITY [None]
  - THERAPEUTIC RESPONSE UNEXPECTED [None]
